FAERS Safety Report 18449585 (Version 1)
Quarter: 2020Q4

REPORT INFORMATION
  Report Type: Spontaneous
  Country: DE (occurrence: DE)
  Receive Date: 20201030
  Receipt Date: 20201030
  Transmission Date: 20210114
  Serious: Yes (Hospitalization)
  Sender: FDA-Public Use
  Company Number: NVSC2020DE287725

PATIENT
  Age: 73 Year
  Sex: Male
  Weight: 96 kg

DRUGS (2)
  1. VARGATEF [Suspect]
     Active Substance: NINTEDANIB
     Indication: LUNG ADENOCARCINOMA
     Dosage: 200 MG, Q12H
     Route: 065
     Dates: start: 20200324
  2. DOCETAXEL. [Suspect]
     Active Substance: DOCETAXEL
     Indication: LUNG ADENOCARCINOMA
     Dosage: UNK (FORMULATION: LIQUID DAILY DOSE: 60 MG/M2 BODY SURFACE AREA (BSA))
     Route: 065
     Dates: start: 20200323

REACTIONS (2)
  - Dizziness [Recovered/Resolved]
  - Aspiration [Recovered/Resolved]

NARRATIVE: CASE EVENT DATE: 20200415
